FAERS Safety Report 10018970 (Version 1)
Quarter: 2014Q1

REPORT INFORMATION
  Report Type: Spontaneous
  Country: US (occurrence: None)
  Receive Date: 20140314
  Receipt Date: 20140314
  Transmission Date: 20141002
  Serious: Yes (Other)
  Sender: FDA-Public Use
  Company Number: None

PATIENT
  Age: 65 Year
  Sex: Female

DRUGS (2)
  1. METHOTREXATE [Suspect]
     Dosage: 0.8ML(20MG) IM WKLY?ONCE AS 2/20/14
     Route: 030
     Dates: start: 20140220
  2. METHOTREXATE [Suspect]
     Dosage: 0.8ML(20MG) IM WKLY?ONCE AS 2/20/14
     Route: 030
     Dates: start: 20140220

REACTIONS (2)
  - Rash generalised [None]
  - Rash morbilliform [None]
